FAERS Safety Report 4944771-4 (Version None)
Quarter: 2006Q1

REPORT INFORMATION
  Report Type: 
  Country: None (occurrence: None)
  Receive Date: 20060113
  Receipt Date: 20051202
  Transmission Date: 20060701
  Serious: Yes (Hospitalization)
  Sender: FDA-Public Use
  Company Number: US-JNJFOC-20051201823

PATIENT
  Age: 93 Year
  Sex: Male
  Weight: 63.5036 kg

DRUGS (1)
  1. RAZADYNE ER [Suspect]
     Indication: AMNESIA
     Dosage: 16 MG, 1 IN 1 DAY, ORAL
     Route: 048
     Dates: start: 20050101, end: 20051121

REACTIONS (1)
  - CYSTITIS [None]
